FAERS Safety Report 4532000-5 (Version None)
Quarter: 2004Q4

REPORT INFORMATION
  Report Type: 
  Country: None (occurrence: None)
  Receive Date: 20041217
  Receipt Date: 20041207
  Transmission Date: 20050328
  Serious: Yes (Hospitalization)
  Sender: FDA-Public Use
  Company Number: 2004105373

PATIENT
  Age: 76 Year
  Sex: Female
  Weight: 70.7611 kg

DRUGS (4)
  1. CORTIZONE-10 (HYDROCORTISONE) [Suspect]
     Indication: PRURITUS
     Dosage: UNSPECIFIED AMOUNT
     Dates: start: 20041014, end: 20041015
  2. LEVOTHYROXINE SODIUM [Concomitant]
  3. THEOPHYLLINE [Concomitant]
  4. COMBIVENT [Concomitant]

REACTIONS (4)
  - APPLICATION SITE DERMATITIS [None]
  - CELLULITIS [None]
  - ECZEMA [None]
  - REFUSAL OF TREATMENT BY PATIENT [None]
